FAERS Safety Report 9176756 (Version 3)
Quarter: 2013Q2

REPORT INFORMATION
  Report Type: Spontaneous
  Country: US (occurrence: US)
  Receive Date: 20130321
  Receipt Date: 20130506
  Transmission Date: 20140414
  Serious: Yes (Death)
  Sender: FDA-Public Use
  Company Number: US-PFIZER INC-2013088875

PATIENT
  Age: 19 Year
  Sex: Male

DRUGS (2)
  1. EPIPEN [Suspect]
     Indication: FOOD ALLERGY
     Dosage: UNK
  2. EPIPEN [Suspect]
     Indication: ANAPHYLACTIC REACTION

REACTIONS (1)
  - Drug ineffective [Fatal]
